FAERS Safety Report 13843008 (Version 2)
Quarter: 2018Q3

REPORT INFORMATION
  Report Type: Report from Study
  Country: None (occurrence: CA)
  Receive Date: 20170808
  Receipt Date: 20180802
  Transmission Date: 20181010
  Serious: Yes (Hospitalization, Other)
  Sender: FDA-Public Use
  Company Number: CA-ABBVIE-17K-028-2060094-00

PATIENT
  Sex: Female

DRUGS (2)
  1. HUMIRA [Suspect]
     Active Substance: ADALIMUMAB
     Indication: CROHN^S DISEASE
     Route: 058
     Dates: start: 20120620, end: 20170726
  2. HUMIRA [Suspect]
     Active Substance: ADALIMUMAB
     Route: 058
     Dates: start: 20170727

REACTIONS (8)
  - Gestational diabetes [Recovered/Resolved]
  - Placenta accreta [Recovered/Resolved]
  - Mucous stools [Unknown]
  - Pain [Unknown]
  - Exposure during pregnancy [Unknown]
  - Live birth [Unknown]
  - Haematochezia [Unknown]
  - Pyrexia [Unknown]

NARRATIVE: CASE EVENT DATE: 2013
